FAERS Safety Report 21769543 (Version 2)
Quarter: 2024Q3

REPORT INFORMATION
  Report Type: Report from Study
  Country: US (occurrence: US)
  Receive Date: 20221223
  Receipt Date: 20240816
  Transmission Date: 20241017
  Serious: No
  Sender: SANOFI AVENTIS
  Company Number: US-SA-SAC20221220001140

PATIENT
  Age: 50 Year
  Sex: Male
  Weight: 81.64 kg

DRUGS (4)
  1. DUPILUMAB [Suspect]
     Active Substance: DUPILUMAB
     Indication: Dermatitis atopic
     Dosage: 300 MG, QOW
     Route: 058
  2. TYLENOL [Concomitant]
     Active Substance: ACETAMINOPHEN
  3. LORATADINE [Concomitant]
     Active Substance: LORATADINE
  4. MICARDIS [Concomitant]
     Active Substance: TELMISARTAN

REACTIONS (1)
  - Drug ineffective [Unknown]
